FAERS Safety Report 14188688 (Version 2)
Quarter: 2017Q4

REPORT INFORMATION
  Report Type: Report from Study
  Country: None (occurrence: DE)
  Receive Date: 20171114
  Receipt Date: 20171117
  Transmission Date: 20180321
  Serious: Yes (Death)
  Sender: FDA-Public Use
  Company Number: DE-ABBVIE-17K-062-2163254-00

PATIENT
  Sex: Male

DRUGS (1)
  1. DUODOPA [Suspect]
     Active Substance: CARBIDOPA\LEVODOPA
     Indication: PARKINSON^S DISEASE
     Dosage: MD: 3.0ML; CRD: 3.3ML/H; CRN: 2.2ML/H; ED: 1.0ML
     Route: 050
     Dates: start: 20170309

REACTIONS (4)
  - Cachexia [Unknown]
  - Multimorbidity [Unknown]
  - Cardiac failure [Fatal]
  - Dysphagia [Unknown]

NARRATIVE: CASE EVENT DATE: 2017
